FAERS Safety Report 15834684 (Version 7)
Quarter: 2019Q3

REPORT INFORMATION
  Report Type: Spontaneous
  Country: US (occurrence: US)
  Receive Date: 20190116
  Receipt Date: 20190722
  Transmission Date: 20191004
  Serious: No
  Sender: FDA-Public Use
  Company Number: US-PFIZER INC-2019016226

PATIENT
  Age: 62 Year
  Sex: Female

DRUGS (6)
  1. VIAGRA [Suspect]
     Active Substance: SILDENAFIL CITRATE
     Indication: SCLERODERMA
  2. VIAGRA [Suspect]
     Active Substance: SILDENAFIL CITRATE
     Indication: PULMONARY HYPERTENSION
  3. VIAGRA [Suspect]
     Active Substance: SILDENAFIL CITRATE
     Indication: AUTOIMMUNE DISORDER
  4. VIAGRA [Suspect]
     Active Substance: SILDENAFIL CITRATE
     Indication: GANGRENE
     Dosage: 25 MG, 3X/DAY
     Route: 048
  5. VIAGRA [Suspect]
     Active Substance: SILDENAFIL CITRATE
     Indication: VASCULAR ACCESS COMPLICATION
  6. VIAGRA [Suspect]
     Active Substance: SILDENAFIL CITRATE
     Indication: SYSTEMIC LUPUS ERYTHEMATOSUS

REACTIONS (3)
  - Drug effective for unapproved indication [Unknown]
  - Off label use [Unknown]
  - Product use issue [Unknown]
